FAERS Safety Report 9307619 (Version 2)
Quarter: 2013Q2

REPORT INFORMATION
  Report Type: Spontaneous
  Country: US (occurrence: US)
  Receive Date: 20130524
  Receipt Date: 20130621
  Transmission Date: 20140414
  Serious: No
  Sender: FDA-Public Use
  Company Number: US-PFIZER INC-2013157698

PATIENT
  Age: 56 Year
  Sex: Male

DRUGS (10)
  1. CELEBREX [Suspect]
     Indication: ARTHRALGIA
     Dosage: UNK
  2. PRAVASTATIN [Concomitant]
     Dosage: 80 MG, (PER DAY)
  3. FISH OIL [Concomitant]
     Dosage: 1000 MG, (PER DAY)
  4. ZETIA [Concomitant]
     Dosage: 10 MG, (PER DAY)
  5. ASA [Concomitant]
     Dosage: 325 MG, (PER DAY)
  6. PLAVIX [Concomitant]
     Dosage: 75 MG, (PER DAY)
  7. LYRICA [Concomitant]
     Dosage: 100 MG, 2X/DAY
  8. CYMBALTA [Concomitant]
     Dosage: 90 MG, (PER DAY)
  9. ACCUPRIL [Concomitant]
     Dosage: 120 MG, (PER DAY)
  10. CLONOPIN [Concomitant]
     Dosage: 0.5 MG, 2X/DAY

REACTIONS (1)
  - Drug hypersensitivity [Unknown]
